FAERS Safety Report 7887969-8 (Version None)
Quarter: 2011Q4

REPORT INFORMATION
  Report Type: 
  Country: None (occurrence: None)
  Receive Date: 20111103
  Receipt Date: 20111027
  Transmission Date: 20120403
  Serious: Yes (Other)
  Sender: FDA-Public Use
  Company Number: JP-ASTELLAS-2011JP007040

PATIENT
  Sex: Male
  Weight: 58 kg

DRUGS (5)
  1. VESICARE [Suspect]
     Dosage: 5 MG, UNKNOWN/D
     Route: 048
  2. LOSARTAN POTASSIUM [Concomitant]
     Indication: HYPERTENSION
     Dosage: 50 MG, UID/QD
     Route: 048
     Dates: start: 20050106
  3. CIBENOL [Suspect]
     Indication: VENTRICULAR EXTRASYSTOLES
     Dosage: 50 MG, TID
     Route: 048
     Dates: start: 19960627
  4. NORVASC [Concomitant]
     Indication: HYPERTENSION
     Dosage: 5 MG, UID/QD
     Route: 048
     Dates: start: 20050205
  5. ARGAMATE [Concomitant]
     Indication: RENAL FAILURE CHRONIC
     Dosage: 25 G, UID/QD
     Route: 048
     Dates: start: 20051115

REACTIONS (3)
  - CARDIAC FAILURE [None]
  - DRY MOUTH [None]
  - PYREXIA [None]
